FAERS Safety Report 7596346-9 (Version None)
Quarter: 2011Q3

REPORT INFORMATION
  Report Type: 
  Country: None (occurrence: None)
  Receive Date: 20110707
  Receipt Date: 20110626
  Transmission Date: 20111222
  Serious: Yes (Hospitalization)
  Sender: FDA-Public Use
  Company Number: CN-BAXTER-2011BH018928

PATIENT
  Age: 35 Year
  Sex: Male
  Weight: 65 kg

DRUGS (2)
  1. DIANEAL [Suspect]
     Indication: RENAL FAILURE CHRONIC
     Route: 033
     Dates: start: 20110601, end: 20110609
  2. DIANEAL [Suspect]
     Route: 033
     Dates: end: 20110531

REACTIONS (3)
  - NAUSEA [None]
  - ASTHENIA [None]
  - DIZZINESS [None]
